FAERS Safety Report 4767863-1 (Version None)
Quarter: 2005Q3

REPORT INFORMATION
  Report Type: 
  Country: None (occurrence: None)
  Receive Date: 20050912
  Receipt Date: 20050902
  Transmission Date: 20060218
  Serious: Yes (Hospitalization)
  Sender: FDA-Public Use
  Company Number: KII-2005-0018507

PATIENT
  Age: 66 Year
  Sex: Female

DRUGS (1)
  1. OXYCONTIN [Suspect]
     Indication: PAIN
     Dosage: SEE TEXT, ORAL
     Route: 048

REACTIONS (5)
  - AGITATION [None]
  - CONFUSIONAL STATE [None]
  - DYSARTHRIA [None]
  - INCORRECT DRUG ADMINISTRATION DURATION [None]
  - SOMNOLENCE [None]
